FAERS Safety Report 21125695 (Version 1)
Quarter: 2022Q3

REPORT INFORMATION
  Report Type: Spontaneous
  Country: GB (occurrence: GB)
  Receive Date: 20220725
  Receipt Date: 20220725
  Transmission Date: 20221026
  Serious: Yes (Other)
  Sender: FDA-Public Use
  Company Number: None

PATIENT
  Sex: Male

DRUGS (1)
  1. DALTEPARIN SODIUM [Suspect]
     Active Substance: DALTEPARIN SODIUM
     Indication: Thrombosis prophylaxis
     Dosage: 5000 UNITS IN THE EVENING

REACTIONS (8)
  - Medication error [Unknown]
  - Periorbital swelling [Recovering/Resolving]
  - Skin exfoliation [Recovering/Resolving]
  - Urticaria [Recovering/Resolving]
  - Erythema [Recovering/Resolving]
  - Pruritus [Recovering/Resolving]
  - Dermatitis contact [Unknown]
  - Reaction to excipient [Unknown]
